FAERS Safety Report 9302084 (Version 1)
Quarter: 2013Q2

REPORT INFORMATION
  Report Type: Spontaneous
  Country: BE (occurrence: BE)
  Receive Date: 20130521
  Receipt Date: 20130521
  Transmission Date: 20140414
  Serious: Yes (Death)
  Sender: FDA-Public Use
  Company Number: BE-B.I. PHARMACEUTICALS,INC./RIDGEFIELD-2013-BL-00253BL

PATIENT
  Age: 90 Year
  Sex: Female

DRUGS (3)
  1. PRADAXA [Suspect]
     Dates: start: 2012, end: 2012
  2. LANOXIN [Concomitant]
  3. NAROPIN [Concomitant]

REACTIONS (2)
  - Cardiac failure [Fatal]
  - Dysgeusia [Unknown]
